FAERS Safety Report 15439562 (Version 9)
Quarter: 2020Q3

REPORT INFORMATION
  Report Type: Report from Study
  Country: US (occurrence: US)
  Receive Date: 20180928
  Receipt Date: 20200918
  Transmission Date: 20201102
  Serious: Yes (Hospitalization, Other)
  Sender: FDA-Public Use
  Company Number: US-UCBSA-2018043620

PATIENT
  Age: 50 Year
  Sex: Male
  Weight: 136 kg

DRUGS (27)
  1. XOLAIR [Concomitant]
     Active Substance: OMALIZUMAB
     Indication: URTICARIA CHRONIC
     Dosage: 150 MG, MONTHLY (QM)
     Route: 058
     Dates: start: 201510
  2. NORVASC [Concomitant]
     Active Substance: AMLODIPINE BESYLATE
     Indication: HYPERTENSION
     Dosage: 5 MG, ONCE DAILY (QD)
     Route: 048
     Dates: start: 201809
  3. ONFI [Concomitant]
     Active Substance: CLOBAZAM
     Indication: EPILEPSY
     Dosage: 10 MILLIGRAM, ONCE DAILY (QD)
     Route: 048
  4. EPIPEN [Concomitant]
     Active Substance: EPINEPHRINE
     Indication: ANAPHYLACTIC REACTION
     Dosage: 0.3 MG ONCE AS NEEDED
     Route: 058
  5. SODIUM CHLORIDE. [Concomitant]
     Active Substance: SODIUM CHLORIDE
     Indication: PRODUCT USED FOR UNKNOWN INDICATION
     Dosage: 3 ML, 3X/DAY (TID)
     Dates: start: 20181127, end: 20181227
  6. LAMICTAL [Concomitant]
     Active Substance: LAMOTRIGINE
     Dosage: 175 MG, 2X/DAY (BID)
     Route: 048
  7. XOLAIR [Concomitant]
     Active Substance: OMALIZUMAB
     Indication: DIVERTICULITIS
     Dosage: 1300 MG, MONTHLY (QM)
     Route: 058
     Dates: start: 20171108
  8. BRIVARACETAM [Suspect]
     Active Substance: BRIVARACETAM
     Indication: EPILEPSY
     Dosage: 50 MG, 2X/DAY (BID)
     Route: 048
     Dates: start: 20180911, end: 20180913
  9. XOLAIR [Concomitant]
     Active Substance: OMALIZUMAB
     Dosage: 300 MG, MONTHLY (QM)
     Route: 058
     Dates: start: 20181127
  10. KETOROLAC TROMETHAMINE. [Concomitant]
     Active Substance: KETOROLAC TROMETHAMINE
     Indication: PRODUCT USED FOR UNKNOWN INDICATION
     Dosage: UNK
     Dates: start: 20181127, end: 20181130
  11. COZAAR [Concomitant]
     Active Substance: LOSARTAN POTASSIUM
     Indication: HYPERTENSION
     Dosage: 50 MG, ONCE DAILY (QD)
     Route: 048
     Dates: start: 20180906
  12. ACETAMINOPHEN. [Concomitant]
     Active Substance: ACETAMINOPHEN
     Indication: PRODUCT USED FOR UNKNOWN INDICATION
     Dosage: 325 MG, 4X/DAY (QID) AS NEEDED
     Dates: start: 20181127, end: 20181227
  13. LORAZEPAM. [Concomitant]
     Active Substance: LORAZEPAM
     Indication: PRODUCT USED FOR UNKNOWN INDICATION
     Dosage: 2 MG, 4X/DAY (QID)
     Dates: start: 20181127, end: 20181204
  14. BRIVARACETAM [Suspect]
     Active Substance: BRIVARACETAM
     Dosage: 50 MG DAILY
     Route: 048
     Dates: start: 20181001, end: 20181002
  15. LAMICTAL [Concomitant]
     Active Substance: LAMOTRIGINE
     Indication: EPILEPSY
     Dosage: 150 MG, 2X/DAY (BID)
     Route: 048
     Dates: start: 2017
  16. LAMICTAL [Concomitant]
     Active Substance: LAMOTRIGINE
     Dosage: 200 MILLIGRAM, 2X/DAY (BID)
     Route: 048
  17. COZAAR [Concomitant]
     Active Substance: LOSARTAN POTASSIUM
     Dosage: 50 MG, 2X/DAY (BID)
     Route: 048
     Dates: start: 20180511
  18. LAMOTRIGINE. [Concomitant]
     Active Substance: LAMOTRIGINE
     Indication: SEIZURE
     Dosage: 150 MG, 2X/DAY (BID)
     Route: 048
     Dates: start: 20181127
  19. MICROZIDE [HYDROCHLOROTHIAZIDE] [Concomitant]
     Indication: HYPERTENSION
     Dosage: 12.5 MG DAILY
     Route: 048
  20. ONDANSETRON [ONDANSETRON HYDROCHLORIDE] [Concomitant]
     Active Substance: ONDANSETRON HYDROCHLORIDE
     Indication: PRODUCT USED FOR UNKNOWN INDICATION
     Dosage: UNK
     Dates: start: 20181127, end: 20181227
  21. VITAMIN D3 [Concomitant]
     Active Substance: CHOLECALCIFEROL
     Indication: SUPPLEMENTATION THERAPY
     Dosage: 2000 IU, ONCE DAILY (QD)
     Route: 048
     Dates: start: 20181118
  22. LATANOPROST. [Concomitant]
     Active Substance: LATANOPROST
     Indication: PRODUCT USED FOR UNKNOWN INDICATION
     Dosage: 2.5 ML GOT EACH EYE AT BED TIME, ONCE DAILY (QD)
     Dates: start: 20181127
  23. LAMICTAL [Concomitant]
     Active Substance: LAMOTRIGINE
     Dosage: 200 MG IN MORNING AND 175 AT NIGHT, 2X/DAY (BID)
     Route: 048
  24. FLONASE [Concomitant]
     Active Substance: FLUTICASONE PROPIONATE
     Indication: HYPERSENSITIVITY
     Dosage: 50 MEQ, 2 SPRAY EACH NOSTRIL DAILY
     Route: 048
     Dates: start: 20181127
  25. PHENYTOIN [PHENYTOIN SODIUM] [Concomitant]
     Indication: SEIZURE
     Dosage: 200 MG IN MORNING AND 300 MG AT BED TIME, 2X/DAY (BID)
     Route: 048
  26. HEPARIN [HEPARIN SODIUM] [Concomitant]
     Indication: PRODUCT USED FOR UNKNOWN INDICATION
     Dosage: 5000 IU, 2X/DAY (BID)
     Dates: start: 20081127, end: 20181227
  27. ERGOCALCIFEROL. [Concomitant]
     Active Substance: ERGOCALCIFEROL
     Indication: SUPPLEMENTATION THERAPY
     Dosage: UNK, ONCE DAILY (QD)
     Route: 048

REACTIONS (9)
  - Cardiac flutter [Recovered/Resolved]
  - Memory impairment [Unknown]
  - Vision blurred [Not Recovered/Not Resolved]
  - Palpitations [Unknown]
  - Seizure [Recovered/Resolved]
  - Acute kidney injury [Recovered/Resolved]
  - Anosognosia [Unknown]
  - Mood swings [Recovered/Resolved]
  - Generalised tonic-clonic seizure [Recovered/Resolved]

NARRATIVE: CASE EVENT DATE: 20180913
